FAERS Safety Report 8234871-8 (Version None)
Quarter: 2012Q1

REPORT INFORMATION
  Report Type: 
  Country: None (occurrence: None)
  Receive Date: 20120326
  Receipt Date: 20120316
  Transmission Date: 20120608
  Serious: Yes (Death, Life-Threatening)
  Sender: FDA-Public Use
  Company Number: JP-BRISTOL-MYERS SQUIBB COMPANY-16407017

PATIENT
  Age: 72 Year
  Sex: Male
  Weight: 55 kg

DRUGS (9)
  1. ORENCIA [Suspect]
     Indication: RHEUMATOID ARTHRITIS
     Dosage: 500MG TWICE IN THE FIRST MONTH (DEC11) AND ONCE IN JAN12, FROM 6DEC11
     Route: 041
     Dates: start: 20111206, end: 20120201
  2. METHOTREXATE [Suspect]
     Indication: RHEUMATOID ARTHRITIS
     Route: 048
     Dates: start: 20020901, end: 20120207
  3. BREDININ [Concomitant]
     Indication: RHEUMATOID ARTHRITIS
     Dates: start: 20060419, end: 20120207
  4. PREDNISOLONE [Concomitant]
     Indication: RHEUMATOID ARTHRITIS
     Route: 048
     Dates: start: 20111101, end: 20120207
  5. FOLIC ACID [Concomitant]
     Route: 048
     Dates: start: 20111101, end: 20120207
  6. AMLODIPINE [Concomitant]
     Indication: HYPERTENSION
     Route: 048
     Dates: start: 20111101, end: 20120207
  7. REBAMIPIDE [Concomitant]
     Indication: PROPHYLAXIS AGAINST GASTROINTESTINAL ULCER
     Route: 048
     Dates: start: 20111101, end: 20120207
  8. RISEDRONATE SODIUM [Concomitant]
     Indication: OSTEOPOROSIS
     Route: 048
     Dates: start: 20111101, end: 20120207
  9. LIMAPROST [Concomitant]
     Indication: SPINAL COLUMN STENOSIS
     Route: 048
     Dates: start: 20111101, end: 20120207

REACTIONS (2)
  - INTERSTITIAL LUNG DISEASE [None]
  - RESPIRATORY FAILURE [None]
